FAERS Safety Report 15514878 (Version 1)
Quarter: 2018Q4

REPORT INFORMATION
  Report Type: Spontaneous
  Country: FR (occurrence: FR)
  Receive Date: 20181017
  Receipt Date: 20181017
  Transmission Date: 20190205
  Serious: Yes (Death)
  Sender: FDA-Public Use
  Company Number: FR-TEVA-2018-FR-964773

PATIENT
  Age: 18 Year
  Sex: Male

DRUGS (4)
  1. METHADONE AP-HP [Suspect]
     Active Substance: METHADONE HYDROCHLORIDE
     Indication: PRODUCT USED FOR UNKNOWN INDICATION
     Dosage: NOT INFORMED
     Route: 065
  2. DIAZEPAM. [Suspect]
     Active Substance: DIAZEPAM
     Indication: PRODUCT USED FOR UNKNOWN INDICATION
     Dosage: NOT INFORMED
     Route: 065
  3. ALCOOL [Suspect]
     Active Substance: ALCOHOL
     Indication: ALCOHOL USE
     Dosage: NOT INFORMED
     Route: 048
  4. CANNABIS ET RESINE [Suspect]
     Active Substance: CANNABIS SATIVA SUBSP. INDICA TOP
     Indication: DRUG ABUSE
     Dosage: NOT INFORMED
     Route: 045

REACTIONS (2)
  - Drug abuse [Fatal]
  - Respiratory depression [Fatal]
